FAERS Safety Report 7982489-4 (Version None)
Quarter: 2011Q4

REPORT INFORMATION
  Report Type: 
  Country: None (occurrence: None)
  Receive Date: 20111215
  Receipt Date: 20111128
  Transmission Date: 20120403
  Serious: Yes (Other)
  Sender: FDA-Public Use
  Company Number: DE-ROCHE-1017551

PATIENT
  Sex: Female

DRUGS (4)
  1. MABTHERA [Suspect]
     Indication: RHEUMATOID ARTHRITIS
  2. OXYCODONE HCL [Concomitant]
     Dosage: 2.5 TO 5 MG AS PER REQUIREMENT.
     Route: 048
  3. IBUPROFEN [Concomitant]
     Route: 048
  4. ETORICOXIB [Concomitant]
     Route: 048

REACTIONS (3)
  - HERPES SIMPLEX [None]
  - PRURITUS [None]
  - INTERVERTEBRAL DISC PROTRUSION [None]
